FAERS Safety Report 24322340 (Version 16)
Quarter: 2025Q2

REPORT INFORMATION
  Report Type: Report from Study
  Country: CA (occurrence: CA)
  Receive Date: 20240916
  Receipt Date: 20250519
  Transmission Date: 20250716
  Serious: Yes (Other)
  Sender: TAKEDA
  Company Number: CA-TAKEDA-2024TUS045156

PATIENT
  Sex: Female
  Weight: 75 kg

DRUGS (23)
  1. GLASSIA [Suspect]
     Active Substance: .ALPHA.1-PROTEINASE INHIBITOR HUMAN
     Indication: Alpha-1 antitrypsin deficiency
     Dosage: 5 DOSAGE FORM, 1/WEEK
     Dates: start: 20240426
  2. GLASSIA [Suspect]
     Active Substance: .ALPHA.1-PROTEINASE INHIBITOR HUMAN
     Dosage: 4620 MILLIGRAM, 1/WEEK
  3. GLASSIA [Suspect]
     Active Substance: .ALPHA.1-PROTEINASE INHIBITOR HUMAN
     Dosage: 4620 MILLIGRAM, 1/WEEK
  4. GLASSIA [Suspect]
     Active Substance: .ALPHA.1-PROTEINASE INHIBITOR HUMAN
     Dosage: UNK UNK, 1/WEEK
  5. GLASSIA [Suspect]
     Active Substance: .ALPHA.1-PROTEINASE INHIBITOR HUMAN
  6. GLASSIA [Suspect]
     Active Substance: .ALPHA.1-PROTEINASE INHIBITOR HUMAN
     Dosage: 5000 MILLIGRAM, 1/WEEK
  7. GLASSIA [Suspect]
     Active Substance: .ALPHA.1-PROTEINASE INHIBITOR HUMAN
     Dosage: 5000 MILLIGRAM, 1/WEEK
  8. GLASSIA [Suspect]
     Active Substance: .ALPHA.1-PROTEINASE INHIBITOR HUMAN
     Dosage: 5000 MILLIGRAM, 1/WEEK
  9. GLASSIA [Suspect]
     Active Substance: .ALPHA.1-PROTEINASE INHIBITOR HUMAN
     Dosage: 5000 MILLIGRAM, 1/WEEK
  10. GLASSIA [Suspect]
     Active Substance: .ALPHA.1-PROTEINASE INHIBITOR HUMAN
     Dosage: 5000 MILLIGRAM, 1/WEEK
  11. GLASSIA [Suspect]
     Active Substance: .ALPHA.1-PROTEINASE INHIBITOR HUMAN
     Dosage: 5000 MILLIGRAM, 1/WEEK
  12. PROLASTIN [Suspect]
     Active Substance: .ALPHA.1-PROTEINASE INHIBITOR HUMAN
     Indication: Product used for unknown indication
  13. METHOTREXATE [Concomitant]
     Active Substance: METHOTREXATE
     Indication: Rheumatoid arthritis
  14. VENTOLIN [Concomitant]
     Active Substance: ALBUTEROL SULFATE
  15. SINGULAIR [Concomitant]
     Active Substance: MONTELUKAST SODIUM
  16. ALBUTEROL [Concomitant]
     Active Substance: ALBUTEROL
  17. PREDNISONE [Concomitant]
     Active Substance: PREDNISONE
  18. ZOPICLONE [Concomitant]
     Active Substance: ZOPICLONE
  19. Reactine [Concomitant]
  20. FOLIC ACID [Concomitant]
     Active Substance: FOLIC ACID
  21. ROSUVASTATIN [Concomitant]
     Active Substance: ROSUVASTATIN
  22. SYNTHROID [Concomitant]
     Active Substance: LEVOTHYROXINE SODIUM
  23. ASPIRIN [Concomitant]
     Active Substance: ASPIRIN

REACTIONS (18)
  - Rheumatoid arthritis [Recovering/Resolving]
  - Body temperature decreased [Unknown]
  - Extra dose administered [Unknown]
  - Inappropriate schedule of product administration [Unknown]
  - Blood pressure increased [Unknown]
  - Headache [Unknown]
  - COVID-19 [Recovering/Resolving]
  - Oxygen saturation decreased [Recovering/Resolving]
  - Respiratory tract congestion [Recovering/Resolving]
  - Pyrexia [Recovering/Resolving]
  - Illness [Recovering/Resolving]
  - Pain [Recovering/Resolving]
  - Influenza [Recovering/Resolving]
  - Sinusitis [Recovered/Resolved]
  - Dyspnoea [Recovering/Resolving]
  - Cough [Not Recovered/Not Resolved]
  - Fatigue [Not Recovered/Not Resolved]
  - Lung disorder [Recovering/Resolving]

NARRATIVE: CASE EVENT DATE: 20240101
